FAERS Safety Report 8393011-5 (Version None)
Quarter: 2012Q2

REPORT INFORMATION
  Report Type: 
  Country: None (occurrence: None)
  Receive Date: 20120529
  Receipt Date: 20120314
  Transmission Date: 20120825
  Serious: No
  Sender: FDA-Public Use
  Company Number: US-ABBOTT-12P-163-0916599-00

PATIENT
  Sex: Male
  Weight: 87.622 kg

DRUGS (2)
  1. FLUTICASONE FUROATE [Concomitant]
     Indication: PRODUCT USED FOR UNKNOWN INDICATION
     Route: 045
     Dates: start: 20120314
  2. ANDROGEL [Suspect]
     Indication: HYPOGONADISM
     Dates: start: 20120314

REACTIONS (1)
  - INCORRECT ROUTE OF DRUG ADMINISTRATION [None]
